FAERS Safety Report 12883249 (Version 1)
Quarter: 2016Q4

REPORT INFORMATION
  Report Type: Spontaneous
  Country: FR (occurrence: FR)
  Receive Date: 20161025
  Receipt Date: 20161025
  Transmission Date: 20170207
  Serious: Yes (Death)
  Sender: FDA-Public Use
  Company Number: FR-MYLANLABS-2016M1036545

PATIENT

DRUGS (7)
  1. MYLAN-CIPROFLOXACIN [Suspect]
     Active Substance: CIPROFLOXACIN
     Indication: ORAL HERPES
  2. MYLAN-CIPROFLOXACIN [Suspect]
     Active Substance: CIPROFLOXACIN
     Indication: ORAL PAIN
     Dosage: 500 MG, BID
     Route: 048
     Dates: start: 20151211
  3. SPIFEN [Concomitant]
     Active Substance: IBUPROFEN
     Indication: PRODUCT USED FOR UNKNOWN INDICATION
     Dosage: UNK, TID
     Route: 048
     Dates: start: 20151016
  4. MYLAN-CIPROFLOXACIN [Suspect]
     Active Substance: CIPROFLOXACIN
     Indication: URINARY TRACT DISORDER
  5. MYLAN-CIPROFLOXACIN [Suspect]
     Active Substance: CIPROFLOXACIN
     Indication: PROSTATITIS
     Dosage: 250 MG, BID
     Route: 048
     Dates: start: 20151016, end: 20151026
  6. MYLAN-CIPROFLOXACIN [Suspect]
     Active Substance: CIPROFLOXACIN
     Indication: EAR PAIN
  7. MYLAN-CIPROFLOXACIN [Suspect]
     Active Substance: CIPROFLOXACIN
     Indication: PALPITATIONS

REACTIONS (2)
  - Completed suicide [Fatal]
  - Hallucination [Fatal]

NARRATIVE: CASE EVENT DATE: 20160110
